FAERS Safety Report 9200447 (Version 2)
Quarter: 2013Q3

REPORT INFORMATION
  Report Type: Report from Study
  Country: GB (occurrence: GB)
  Receive Date: 20130329
  Receipt Date: 20130826
  Transmission Date: 20140515
  Serious: Yes (Death, Hospitalization)
  Sender: FDA-Public Use
  Company Number: GB-ABBOTT-13P-167-1070034-00

PATIENT
  Age: 61 Year
  Sex: Male

DRUGS (2)
  1. HUMIRA [Suspect]
     Indication: RHEUMATOID ARTHRITIS
     Route: 058
     Dates: start: 20030221, end: 20050215
  2. METHOTREXATE [Concomitant]
     Indication: PRODUCT USED FOR UNKNOWN INDICATION

REACTIONS (7)
  - Multi-organ failure [Fatal]
  - Cellulitis [Fatal]
  - Chronic obstructive pulmonary disease [Fatal]
  - Cardiac failure [Fatal]
  - Renal failure acute [Fatal]
  - Dyspnoea [Unknown]
  - Hypotension [Unknown]
